FAERS Safety Report 17144270 (Version 1)
Quarter: 2019Q4

REPORT INFORMATION
  Report Type: Report from Study
  Country: None (occurrence: IE)
  Receive Date: 20191211
  Receipt Date: 20191211
  Transmission Date: 20200122
  Serious: Yes (Hospitalization)
  Sender: FDA-Public Use
  Company Number: IE-ABBVIE-19K-229-3172163-00

PATIENT
  Sex: Female

DRUGS (2)
  1. ABIDEC [Concomitant]
     Indication: PRODUCT USED FOR UNKNOWN INDICATION
     Route: 050
  2. SYNAGIS [Suspect]
     Active Substance: PALIVIZUMAB
     Indication: PREMATURE BABY
     Dosage: SEASON 1
     Route: 030
     Dates: start: 20191030, end: 20191030

REACTIONS (2)
  - Lower respiratory tract infection [Recovered/Resolved]
  - Meningitis viral [Recovered/Resolved]

NARRATIVE: CASE EVENT DATE: 2019
